FAERS Safety Report 4325315-7 (Version None)
Quarter: 2004Q1

REPORT INFORMATION
  Report Type: 
  Country: None (occurrence: None)
  Receive Date: 20040326
  Receipt Date: 20040326
  Transmission Date: 20041129
  Serious: Yes (Hospitalization)
  Sender: FDA-Public Use
  Company Number: None

PATIENT
  Age: 31 Year
  Sex: Male

DRUGS (1)
  1. HALOPERIDOL [Suspect]

REACTIONS (13)
  - BLOOD CREATININE INCREASED [None]
  - BODY TEMPERATURE DECREASED [None]
  - DYSTONIA [None]
  - EYE ROLLING [None]
  - GAZE PALSY [None]
  - HYPERHIDROSIS [None]
  - HYPERREFLEXIA [None]
  - MUSCLE RIGIDITY [None]
  - OCULOGYRATION [None]
  - OPISTHOTONUS [None]
  - RENAL FAILURE [None]
  - RISUS SARDONICUS [None]
  - SINUS TACHYCARDIA [None]
